FAERS Safety Report 9614539 (Version 1)
Quarter: 2013Q4

REPORT INFORMATION
  Report Type: Spontaneous
  Country: NL (occurrence: NL)
  Receive Date: 20131011
  Receipt Date: 20131011
  Transmission Date: 20140711
  Serious: Yes (Hospitalization)
  Sender: FDA-Public Use
  Company Number: PHHY2013NL113861

PATIENT
  Sex: Male

DRUGS (3)
  1. RITALIN [Suspect]
     Indication: ATTENTION DEFICIT/HYPERACTIVITY DISORDER
  2. ANTIPSYCHOTICS [Concomitant]
  3. HYPNOTICS AND SEDATIVES [Concomitant]

REACTIONS (2)
  - Psychotic disorder [Unknown]
  - Suicidal behaviour [Unknown]
